FAERS Safety Report 5508652-X (Version None)
Quarter: 2007Q4

REPORT INFORMATION
  Report Type: 
  Country: None (occurrence: None)
  Receive Date: 20071107
  Receipt Date: 20071029
  Transmission Date: 20080405
  Serious: Yes (Hospitalization)
  Sender: FDA-Public Use
  Company Number: KR-WYE-H00703507

PATIENT
  Sex: Male
  Weight: 64.7 kg

DRUGS (5)
  1. SIROLIMUS [Suspect]
     Indication: PROPHYLAXIS AGAINST TRANSPLANT REJECTION
     Route: 048
     Dates: start: 20070721, end: 20070101
  2. SIROLIMUS [Suspect]
     Route: 048
     Dates: start: 20070101
  3. BISOPROLOL FUMARATE [Concomitant]
     Indication: HYPERTENSION
     Route: 048
     Dates: start: 20070831
  4. AMLODIPINE [Concomitant]
     Indication: HYPERTENSION
     Route: 048
     Dates: start: 20070921
  5. SEPTRIN [Concomitant]
     Indication: PROPHYLAXIS
     Dosage: 10 (UNITS NOT PROVIDED), TWICE DAILY
     Route: 048
     Dates: start: 20070720

REACTIONS (1)
  - HYPERGLYCAEMIA [None]
